FAERS Safety Report 22964295 (Version 2)
Quarter: 2024Q1

REPORT INFORMATION
  Report Type: Spontaneous
  Country: US (occurrence: US)
  Receive Date: 20230921
  Receipt Date: 20240329
  Transmission Date: 20240410
  Serious: No
  Sender: FDA-Public Use
  Company Number: US-ABBVIE-5416201

PATIENT
  Age: 54 Year
  Sex: Female

DRUGS (2)
  1. LO LOESTRIN FE [Suspect]
     Active Substance: ETHINYL ESTRADIOL\NORETHINDRONE ACETATE
     Indication: Hormone replacement therapy
     Dosage: DURATION TEXT: OVER 15 YEARS?NORETHINDRONE 1MG; ETHINYL ESTRAD 10MCG; ETHINYL ESTRAD 10MCG
     Route: 048
  2. LO LOESTRIN FE [Suspect]
     Active Substance: ETHINYL ESTRADIOL\NORETHINDRONE ACETATE
     Indication: Hormone replacement therapy
     Dosage: RESTARTED?NORETHINDRONE 1MG; ETHINYL ESTRAD 10MCG; ETHINYL ESTRAD 10MCG
     Route: 048

REACTIONS (1)
  - Menopausal disorder [Unknown]
